FAERS Safety Report 4626037-5 (Version None)
Quarter: 2005Q2

REPORT INFORMATION
  Report Type: 
  Country: None (occurrence: None)
  Receive Date: 20050404
  Receipt Date: 20050321
  Transmission Date: 20051028
  Serious: Yes (Hospitalization)
  Sender: FDA-Public Use
  Company Number: US-GLAXOSMITHKLINE-A0550580A

PATIENT
  Age: 62 Year
  Sex: Female
  Weight: 66 kg

DRUGS (5)
  1. CITRUCEL REGULAR SUSPENSION [Suspect]
     Indication: CONSTIPATION
     Route: 048
     Dates: start: 20000101
  2. TAMOXIFEN CITRATE [Concomitant]
     Indication: BREAST CANCER
     Dosage: 20MG PER DAY
     Route: 048
  3. PRAVACHOL [Concomitant]
     Dosage: 20MG PER DAY
     Route: 048
  4. DIGOXIN [Concomitant]
     Dosage: .25MG PER DAY
     Route: 048
  5. ALLEGRA [Concomitant]
     Indication: MULTIPLE ALLERGIES
     Dosage: 180MG PER DAY
     Route: 048

REACTIONS (4)
  - ABDOMINAL PAIN [None]
  - BOWEL MOVEMENT IRREGULARITY [None]
  - GASTROINTESTINAL MOTILITY DISORDER [None]
  - WEIGHT DECREASED [None]
